FAERS Safety Report 9197252 (Version 1)
Quarter: 2013Q1

REPORT INFORMATION
  Report Type: Spontaneous
  Country: DK (occurrence: DK)
  Receive Date: 20130328
  Receipt Date: 20130328
  Transmission Date: 20140127
  Serious: Yes (Hospitalization)
  Sender: FDA-Public Use
  Company Number: DK-PERRIGO-13DK002750

PATIENT
  Age: 74 Year
  Sex: Male

DRUGS (4)
  1. IBUPROFEN RX 400 MG 373 [Suspect]
     Indication: BACK PAIN
     Dosage: 400 MG, TID
     Route: 048
  2. TRAMADOL [Suspect]
     Indication: BACK PAIN
     Dosage: 50 MG, TID
     Route: 048
  3. WARFARIN [Suspect]
     Indication: ATRIAL FIBRILLATION
     Dosage: UNK
     Route: 048
  4. WARFARIN [Suspect]
     Dosage: UNK
     Route: 048

REACTIONS (2)
  - International normalised ratio increased [Recovered/Resolved]
  - Drug interaction [Recovered/Resolved]
